FAERS Safety Report 8783510 (Version 1)
Quarter: 2012Q4

REPORT INFORMATION
  Report Type: 
  Country: BR (occurrence: BR)
  Receive Date: 20120913
  Receipt Date: 20120913
  Transmission Date: 20130627
  Serious: Yes (Hospitalization, Other)
  Sender: FDA-Public Use
  Company Number: PHHY2012BR079054

PATIENT
  Age: 76 Year
  Sex: Male
  Weight: 66 kg

DRUGS (7)
  1. ZOLPIDEM [Suspect]
  2. AMLODIPINE [Suspect]
  3. SIMVASTATIN [Suspect]
  4. AMIODARONE [Concomitant]
  5. DILTIAZEM [Concomitant]
  6. ACETYLSALICYLIC ACID [Concomitant]
  7. CHLORTALIDONE AND AMILORIDE [Concomitant]

REACTIONS (5)
  - Chronic obstructive pulmonary disease [Recovering/Resolving]
  - Cardiac failure [Recovering/Resolving]
  - Atrial fibrillation [Recovering/Resolving]
  - Hypokinesia [Recovering/Resolving]
  - Dyspnoea [Recovering/Resolving]
